FAERS Safety Report 8374794-7 (Version None)
Quarter: 2012Q2

REPORT INFORMATION
  Report Type: 
  Country: None (occurrence: None)
  Receive Date: 20120521
  Receipt Date: 20120502
  Transmission Date: 20120825
  Serious: No
  Sender: FDA-Public Use
  Company Number: US-ASTRAZENECA-2012SE28662

PATIENT
  Age: 54 Year
  Sex: Female
  Weight: 68 kg

DRUGS (2)
  1. SYMBICORT [Suspect]
     Indication: ASTHMA
     Dosage: UNKNOWN FREQUENCY
     Route: 055
     Dates: start: 20090101
  2. XANAX [Concomitant]
     Indication: INSOMNIA

REACTIONS (3)
  - INTENTIONAL DRUG MISUSE [None]
  - DYSPNOEA [None]
  - OFF LABEL USE [None]
